FAERS Safety Report 13823584 (Version 1)
Quarter: 2017Q3

REPORT INFORMATION
  Report Type: Spontaneous
  Country: GB (occurrence: GB)
  Receive Date: 20170802
  Receipt Date: 20170802
  Transmission Date: 20171127
  Serious: Yes (Other)
  Sender: FDA-Public Use
  Company Number: GB-AUROBINDO-AUR-APL-2017-34347

PATIENT
  Age: 73 Year
  Sex: Male
  Weight: 67.58 kg

DRUGS (8)
  1. TRAMADOL HARD CAPSULE [Suspect]
     Active Substance: TRAMADOL
     Indication: POSTOPERATIVE ANALGESIA
     Dosage: 50 MG, 3 TIMES A DAY
     Route: 048
     Dates: start: 20170309, end: 20170313
  2. RANITIDINE HYDROCHLORIDE. [Concomitant]
     Active Substance: RANITIDINE HYDROCHLORIDE
     Indication: PRODUCT USED FOR UNKNOWN INDICATION
     Dosage: 300 MG, ONCE A DAY
     Route: 065
  3. RANITIDINE HYDROCHLORIDE. [Concomitant]
     Active Substance: RANITIDINE HYDROCHLORIDE
     Dosage: AT NIGHT
  4. TRAMADOL HARD CAPSULE [Suspect]
     Active Substance: TRAMADOL
     Dosage: 100 MG, UNK
     Route: 048
     Dates: start: 20170331
  5. TRAMADOL HARD CAPSULE [Suspect]
     Active Substance: TRAMADOL
     Dosage: 100 MG, FOUR TIMES/DAY
     Route: 048
     Dates: start: 20170313, end: 20170330
  6. PARACETAMOL [Concomitant]
     Active Substance: ACETAMINOPHEN
     Indication: ARTHRALGIA
  7. IBUPROFEN. [Concomitant]
     Active Substance: IBUPROFEN
     Indication: ARTHRALGIA
  8. LORATADINE. [Concomitant]
     Active Substance: LORATADINE
     Indication: OESOPHAGITIS

REACTIONS (8)
  - Anxiety [Recovered/Resolved]
  - Suicidal ideation [Recovered/Resolved]
  - Malaise [Recovered/Resolved]
  - Drug dependence [Recovered/Resolved]
  - Influenza like illness [Recovered/Resolved]
  - Withdrawal syndrome [Recovered/Resolved]
  - Chills [Recovered/Resolved]
  - Feeling abnormal [Recovered/Resolved]

NARRATIVE: CASE EVENT DATE: 20170330
